FAERS Safety Report 7893518-0 (Version None)
Quarter: 2011Q4

REPORT INFORMATION
  Report Type: 
  Country: None (occurrence: None)
  Receive Date: 20111104
  Receipt Date: 20111031
  Transmission Date: 20120403
  Serious: Yes (Hospitalization)
  Sender: FDA-Public Use
  Company Number: US-CEPHALON-2011005601

PATIENT
  Age: 36 Year
  Sex: Female

DRUGS (3)
  1. SUBOXONE [Suspect]
  2. FENTANYL CITRATE [Suspect]
     Route: 002
  3. OXYCODONE HCL AND ACETAMINOPHEN [Suspect]

REACTIONS (20)
  - MOANING [None]
  - ASPIRATION [None]
  - BLOOD PRESSURE SYSTOLIC INCREASED [None]
  - BLOOD PRESSURE DIASTOLIC DECREASED [None]
  - OVERDOSE [None]
  - CLOSTRIDIAL INFECTION [None]
  - GAIT DISTURBANCE [None]
  - MENTAL STATUS CHANGES [None]
  - LUNG INFILTRATION [None]
  - DRUG ABUSE [None]
  - SUPRAVENTRICULAR TACHYCARDIA [None]
  - WITHDRAWAL SYNDROME [None]
  - THERAPEUTIC RESPONSE DECREASED [None]
  - TACHYPNOEA [None]
  - PNEUMONIA [None]
  - AGITATION [None]
  - BLOOD GLUCOSE INCREASED [None]
  - BLOOD POTASSIUM DECREASED [None]
  - SELF-MEDICATION [None]
  - BLOOD MAGNESIUM DECREASED [None]
